FAERS Safety Report 4878983-5 (Version None)
Quarter: 2006Q1

REPORT INFORMATION
  Report Type: 
  Country: None (occurrence: None)
  Receive Date: 20060112
  Receipt Date: 20050728
  Transmission Date: 20060701
  Serious: Yes (Hospitalization)
  Sender: FDA-Public Use
  Company Number: US-MERCK-0507USA04342

PATIENT
  Age: 46 Year
  Sex: Female
  Weight: 127 kg

DRUGS (2)
  1. VIOXX [Suspect]
     Indication: BACK PAIN
     Route: 048
     Dates: start: 19991101, end: 20040901
  2. AMARYL [Concomitant]
     Indication: DIABETES MELLITUS NON-INSULIN-DEPENDENT
     Route: 065
     Dates: start: 20000701

REACTIONS (15)
  - AORTIC VALVE INCOMPETENCE [None]
  - BRAIN OEDEMA [None]
  - CEREBRAL HAEMATOMA [None]
  - CEREBRAL HAEMORRHAGE [None]
  - CEREBROVASCULAR ACCIDENT [None]
  - COGNITIVE DISORDER [None]
  - DEPRESSION [None]
  - DIABETES MELLITUS NON-INSULIN-DEPENDENT [None]
  - DILATATION ATRIAL [None]
  - DILATATION VENTRICULAR [None]
  - EMOTIONAL DISTRESS [None]
  - HYPERTENSION [None]
  - MILD MENTAL RETARDATION [None]
  - PULMONARY VALVE INCOMPETENCE [None]
  - VISION BLURRED [None]
